FAERS Safety Report 7213583-3 (Version None)
Quarter: 2011Q1

REPORT INFORMATION
  Report Type: 
  Country: None (occurrence: None)
  Receive Date: 20110106
  Receipt Date: 20101123
  Transmission Date: 20110831
  Serious: Yes (Death, Life-Threatening, Hospitalization, Other)
  Sender: FDA-Public Use
  Company Number: US-BAXTER-2009BH017777

PATIENT
  Age: 63 Year
  Sex: Male
  Weight: 87 kg

DRUGS (45)
  1. HEPARIN SODIUM INJECTION [Suspect]
     Route: 040
     Dates: start: 20070813, end: 20070813
  2. CORDARONE [Concomitant]
     Indication: PRODUCT USED FOR UNKNOWN INDICATION
     Route: 065
  3. HEPARIN LOCK FLUSH [Suspect]
     Route: 042
     Dates: start: 20070811, end: 20070813
  4. HEPARIN LOCK FLUSH [Suspect]
     Route: 042
     Dates: start: 20070811, end: 20070813
  5. PRIMACOR [Suspect]
  6. DIGOXIN [Concomitant]
     Indication: PRODUCT USED FOR UNKNOWN INDICATION
     Route: 065
  7. COENZYME Q10 [Concomitant]
     Indication: PRODUCT USED FOR UNKNOWN INDICATION
     Route: 065
  8. CALCIUM WITH VITAMIN D [Concomitant]
     Indication: PRODUCT USED FOR UNKNOWN INDICATION
     Route: 065
  9. METOLAZONE [Concomitant]
     Indication: PRODUCT USED FOR UNKNOWN INDICATION
     Route: 065
  10. ALLOPURINOL [Concomitant]
     Indication: PRODUCT USED FOR UNKNOWN INDICATION
     Route: 065
  11. PREDNISONE [Concomitant]
     Route: 065
  12. HEPARIN SODIUM INJECTION [Suspect]
     Indication: THERAPEUTIC PROCEDURE
     Route: 042
     Dates: start: 20070920, end: 20071113
  13. SPIRONOLACTONE [Concomitant]
     Indication: PRODUCT USED FOR UNKNOWN INDICATION
     Route: 065
  14. VITAMIN B12 FOR INJECTION [Concomitant]
     Indication: PRODUCT USED FOR UNKNOWN INDICATION
     Route: 065
  15. SILDENAFIL [Concomitant]
     Indication: PRODUCT USED FOR UNKNOWN INDICATION
     Route: 065
  16. DOBUTAMINE HCL [Concomitant]
     Indication: CARDIAC FAILURE CONGESTIVE
     Route: 042
  17. HEPARIN SODIUM INJECTION [Suspect]
     Route: 042
     Dates: start: 20071001, end: 20071001
  18. HEPARIN LOCK FLUSH [Suspect]
     Route: 042
     Dates: start: 20070924, end: 20070925
  19. PRIMACOR [Suspect]
  20. PRIMACOR [Suspect]
  21. LIPITOR [Concomitant]
     Indication: PRODUCT USED FOR UNKNOWN INDICATION
     Route: 065
  22. PREDNISONE [Concomitant]
     Indication: PRODUCT USED FOR UNKNOWN INDICATION
     Route: 065
  23. LEVOTHYROXINE SODIUM [Concomitant]
     Indication: PRODUCT USED FOR UNKNOWN INDICATION
     Route: 065
  24. PROPOXYPHENE NAPSYLATE [Concomitant]
     Indication: PRODUCT USED FOR UNKNOWN INDICATION
     Route: 065
  25. ALLOPURINOL [Concomitant]
     Route: 065
  26. PANTOPRAZOLE [Concomitant]
     Indication: GASTROOESOPHAGEAL REFLUX DISEASE
     Route: 048
  27. HEPARIN SODIUM INJECTION [Suspect]
     Route: 042
     Dates: start: 20071111, end: 20071113
  28. PRIMACOR [Suspect]
     Indication: CATHETERISATION CARDIAC
     Dates: start: 20071019
  29. FOLIC ACID [Concomitant]
     Indication: PRODUCT USED FOR UNKNOWN INDICATION
     Route: 065
  30. WARFARIN [Concomitant]
     Indication: PRODUCT USED FOR UNKNOWN INDICATION
     Route: 065
  31. HEPARIN SODIUM 5,000 UNITS IN DEXTROSE 5% [Suspect]
     Indication: ATRIAL FIBRILLATION
     Route: 041
     Dates: start: 20070813, end: 20070813
  32. HEPARIN LOCK FLUSH [Suspect]
     Route: 042
     Dates: start: 20070924, end: 20070925
  33. ENALAPRIL MALEATE [Concomitant]
     Indication: PRODUCT USED FOR UNKNOWN INDICATION
     Route: 065
  34. COREG [Concomitant]
     Indication: PRODUCT USED FOR UNKNOWN INDICATION
     Route: 065
  35. METHOTREXATE [Concomitant]
     Indication: PRODUCT USED FOR UNKNOWN INDICATION
     Route: 065
  36. HEPARIN LOCK FLUSH [Suspect]
     Indication: THERAPEUTIC PROCEDURE
     Route: 042
     Dates: start: 20071018, end: 20071113
  37. FUROSEMIDE [Concomitant]
     Indication: PRODUCT USED FOR UNKNOWN INDICATION
     Route: 065
  38. POTASSIUM CHLORIDE [Concomitant]
     Indication: PRODUCT USED FOR UNKNOWN INDICATION
     Route: 065
  39. HEPARIN LOCK FLUSH [Suspect]
     Indication: INTRAVENOUS CATHETER MANAGEMENT
     Route: 042
     Dates: start: 20071018, end: 20071113
  40. PRIMACOR [Suspect]
     Indication: HYPOTENSION
     Dates: start: 20071019
  41. PRIMACOR [Suspect]
  42. PRIMACOR [Suspect]
     Route: 041
     Dates: start: 20070921
  43. PRIMACOR [Suspect]
     Route: 041
     Dates: start: 20070921
  44. FOSAMAX [Concomitant]
     Indication: PRODUCT USED FOR UNKNOWN INDICATION
     Route: 065
  45. COLCHICINE [Concomitant]
     Indication: PRODUCT USED FOR UNKNOWN INDICATION
     Route: 065

REACTIONS (27)
  - HYPOTENSION [None]
  - PHARYNGEAL OEDEMA [None]
  - COAGULOPATHY [None]
  - LACERATION [None]
  - INFECTION [None]
  - PRURITUS [None]
  - PULMONARY ARTERIAL PRESSURE INCREASED [None]
  - NAUSEA [None]
  - ACUTE RESPIRATORY FAILURE [None]
  - SYNCOPE [None]
  - FATIGUE [None]
  - SEPTIC SHOCK [None]
  - CARDIOGENIC SHOCK [None]
  - CHEST PAIN [None]
  - URINE OUTPUT DECREASED [None]
  - URINARY RETENTION [None]
  - HEADACHE [None]
  - CARDIOMYOPATHY [None]
  - STAPHYLOCOCCAL BACTERAEMIA [None]
  - FORCED EXPIRATORY VOLUME DECREASED [None]
  - SUBARACHNOID HAEMORRHAGE [None]
  - ERYTHEMA [None]
  - VOMITING [None]
  - ABDOMINAL PAIN [None]
  - PLATELET COUNT DECREASED [None]
  - DIARRHOEA [None]
  - RENAL FAILURE [None]
